FAERS Safety Report 8521217-0 (Version None)
Quarter: 2012Q3

REPORT INFORMATION
  Report Type: 
  Country: None (occurrence: None)
  Receive Date: 20120719
  Receipt Date: 20120711
  Transmission Date: 20120928
  Serious: Yes (Congenital Anomaly)
  Sender: FDA-Public Use
  Company Number: DK-ROCHE-1087229

PATIENT
  Sex: Male

DRUGS (3)
  1. PREDNISOLONE [Concomitant]
     Dates: start: 20110309, end: 20110810
  2. ACTEMRA [Suspect]
     Indication: RHEUMATOID ARTHRITIS
     Dosage: LAST DOSE PRIOR TO SAE: 29/OCT/2010
     Route: 064
     Dates: start: 20090407
  3. METHOTREXATE [Suspect]
     Indication: RHEUMATOID ARTHRITIS
     Dosage: LAST DOSE PRIOR TO SAE: 03/JAN/2011
     Route: 064
     Dates: start: 20090407

REACTIONS (1)
  - POLYDACTYLY [None]
